FAERS Safety Report 10713026 (Version 4)
Quarter: 2015Q2

REPORT INFORMATION
  Report Type: Spontaneous
  Country: US (occurrence: US)
  Receive Date: 20150115
  Receipt Date: 20150421
  Transmission Date: 20150821
  Serious: Yes (Death, Other)
  Sender: FDA-Public Use
  Company Number: PHHY2015US003600

PATIENT
  Age: 28 Year
  Sex: Female

DRUGS (11)
  1. CLOFAZIMINE [Suspect]
     Active Substance: CLOFAZIMINE
     Indication: LUNG INFECTION
  2. RIFABUTIN. [Suspect]
     Active Substance: RIFABUTIN
     Indication: MYCOBACTERIUM AVIUM COMPLEX INFECTION
     Route: 065
  3. AZITHROMYCIN [Suspect]
     Active Substance: AZITHROMYCIN ANHYDROUS
     Indication: MYCOBACTERIUM AVIUM COMPLEX INFECTION
     Route: 065
  4. TACROLIMUS. [Suspect]
     Active Substance: TACROLIMUS
     Indication: IMMUNOSUPPRESSION
     Route: 065
  5. RIFABUTIN. [Suspect]
     Active Substance: RIFABUTIN
     Indication: LUNG INFECTION
  6. CLOFAZIMINE [Suspect]
     Active Substance: CLOFAZIMINE
     Indication: MYCOBACTERIUM AVIUM COMPLEX INFECTION
     Dosage: 100 MG, QD
     Route: 065
  7. AZITHROMYCIN [Suspect]
     Active Substance: AZITHROMYCIN ANHYDROUS
     Indication: LUNG INFECTION
  8. CIPROFLOXACIN. [Suspect]
     Active Substance: CIPROFLOXACIN
     Indication: MYCOBACTERIUM AVIUM COMPLEX INFECTION
     Route: 065
  9. PREDNISONE. [Suspect]
     Active Substance: PREDNISONE
     Indication: IMMUNOSUPPRESSION
     Route: 065
  10. ETHAMBUTOL [Suspect]
     Active Substance: ETHAMBUTOL HYDROCHLORIDE
     Indication: MYCOBACTERIUM AVIUM COMPLEX INFECTION
     Route: 065
  11. CIPROFLOXACIN. [Suspect]
     Active Substance: CIPROFLOXACIN
     Indication: LUNG INFECTION

REACTIONS (4)
  - Drug intolerance [Unknown]
  - Transplant rejection [Fatal]
  - Skin discolouration [Recovered/Resolved]
  - Gastrointestinal disorder [Unknown]
